FAERS Safety Report 9566484 (Version 2)
Quarter: 2013Q4

REPORT INFORMATION
  Report Type: Spontaneous
  Country: US (occurrence: US)
  Receive Date: 20130930
  Receipt Date: 20131004
  Transmission Date: 20140711
  Serious: No
  Sender: FDA-Public Use
  Company Number: US-009507513-1309USA014303

PATIENT
  Sex: Male

DRUGS (4)
  1. CLARITIN REDITABS 12HR [Suspect]
     Indication: HYPERSENSITIVITY
     Dosage: UNK, UNKNOWN
     Route: 048
  2. CLARITIN REDITABS 12HR [Suspect]
     Indication: NASOPHARYNGITIS
  3. AFRIN (ASPIRIN (+) CHLORPHENIRAMINE MALEATE (+) PHENYLEPHRINE HYDROCHL [Concomitant]
     Indication: HYPERSENSITIVITY
     Dosage: UNK, UNKNOWN
  4. AFRIN (ASPIRIN (+) CHLORPHENIRAMINE MALEATE (+) PHENYLEPHRINE HYDROCHL [Concomitant]
     Indication: NASOPHARYNGITIS

REACTIONS (1)
  - Expired drug administered [Unknown]
